FAERS Safety Report 21614033 (Version 1)
Quarter: 2022Q4

REPORT INFORMATION
  Report Type: Spontaneous
  Country: US (occurrence: None)
  Receive Date: 20221116
  Receipt Date: 20221116
  Transmission Date: 20230113
  Serious: No
  Sender: FDA-Public Use
  Company Number: None

PATIENT

DRUGS (1)
  1. ATROPINE SULFATE [Suspect]
     Active Substance: ATROPINE SULFATE
     Dosage: OTHER ROUTE : INJECTION;?
     Route: 050

REACTIONS (4)
  - Product expiration date issue [None]
  - Product expiration date issue [None]
  - Product use complaint [None]
  - Intercepted product storage error [None]
